FAERS Safety Report 19064109 (Version 1)
Quarter: 2021Q1

REPORT INFORMATION
  Report Type: Report from Study
  Country: ES (occurrence: ES)
  Receive Date: 20210326
  Receipt Date: 20210326
  Transmission Date: 20210420
  Serious: Yes (Hospitalization)
  Sender: FDA-Public Use
  Company Number: ES-JNJFOC-20201012586

PATIENT
  Sex: Male
  Weight: 74 kg

DRUGS (7)
  1. SILDENAFIL. [Concomitant]
     Active Substance: SILDENAFIL
     Route: 048
     Dates: start: 20181123, end: 20181214
  2. MACITENTAN [Suspect]
     Active Substance: MACITENTAN
     Indication: PULMONARY ARTERIAL HYPERTENSION
     Route: 048
     Dates: start: 20191004
  3. SILDENAFIL. [Concomitant]
     Active Substance: SILDENAFIL
     Route: 048
     Dates: start: 20190201, end: 20190301
  4. SILDENAFIL. [Concomitant]
     Active Substance: SILDENAFIL
     Route: 048
     Dates: start: 20190111, end: 20190201
  5. PROPRANOLOL [Concomitant]
     Active Substance: PROPRANOLOL HYDROCHLORIDE
     Indication: HAEMORRHAGE PROPHYLAXIS
     Route: 048
     Dates: start: 2017
  6. SILDENAFIL. [Concomitant]
     Active Substance: SILDENAFIL
     Route: 048
     Dates: start: 20190302
  7. SILDENAFIL. [Concomitant]
     Active Substance: SILDENAFIL
     Route: 048
     Dates: start: 20181214, end: 20181221

REACTIONS (3)
  - Pyrexia [Unknown]
  - Oedema [Recovered/Resolved]
  - Fluid overload [Recovered/Resolved]

NARRATIVE: CASE EVENT DATE: 20200714
